FAERS Safety Report 7220299-6 (Version None)
Quarter: 2011Q1

REPORT INFORMATION
  Report Type: 
  Country: None (occurrence: None)
  Receive Date: 20110111
  Receipt Date: 20110103
  Transmission Date: 20110831
  Serious: Yes (Hospitalization, Other)
  Sender: FDA-Public Use
  Company Number: CA-JNJFOC-20101100668

PATIENT
  Sex: Female
  Weight: 68.1 kg

DRUGS (4)
  1. REMICADE [Suspect]
     Route: 042
  2. REMICADE [Suspect]
     Indication: CROHN'S DISEASE
     Dosage: 48 TOTAL DOSES
     Route: 042
  3. PANTOLOC [Concomitant]
     Route: 048
  4. IMURAN [Concomitant]

REACTIONS (6)
  - VOMITING [None]
  - DEHYDRATION [None]
  - NEPHROLITHIASIS [None]
  - DIARRHOEA [None]
  - NAUSEA [None]
  - FATIGUE [None]
